FAERS Safety Report 9719100 (Version 1)
Quarter: 2013Q4

REPORT INFORMATION
  Report Type: Spontaneous
  Country: CH (occurrence: CH)
  Receive Date: 20131127
  Receipt Date: 20131127
  Transmission Date: 20140711
  Serious: Yes (Other)
  Sender: FDA-Public Use
  Company Number: CH-009507513-1311CHE008503

PATIENT
  Age: 45 Year
  Sex: Male

DRUGS (15)
  1. TIENAM [Suspect]
     Indication: STAPHYLOCOCCAL SEPSIS
     Dosage: UNK
     Route: 042
     Dates: start: 20130622, end: 20130701
  2. CUBICIN [Suspect]
     Indication: STAPHYLOCOCCAL SEPSIS
     Dosage: 700 MG, QD
     Route: 042
     Dates: start: 20130618, end: 20130621
  3. GARAMYCIN [Concomitant]
     Dosage: UNK
     Route: 042
     Dates: start: 20130618, end: 20130625
  4. AMLODIPINE [Concomitant]
     Dosage: UNK
     Route: 048
     Dates: start: 20130623, end: 201307
  5. TRIATEC (RAMIPRIL) [Concomitant]
     Dosage: UNK
     Route: 048
     Dates: start: 20130620
  6. LAXOBERON [Concomitant]
     Dosage: UNK
     Route: 048
     Dates: start: 20130620, end: 201306
  7. POLYETHYLENE GLYCOL [Concomitant]
     Dosage: UNK
     Route: 048
     Dates: start: 20130620
  8. DISOPRIVAN [Concomitant]
     Dosage: UNK
     Route: 041
     Dates: start: 20130618, end: 20130624
  9. DORMICUM (MIDAZOLAM) [Concomitant]
     Dosage: UNK
     Route: 042
     Dates: start: 20130618, end: 20130624
  10. EBRANTIL [Concomitant]
     Dosage: UNK
     Route: 042
     Dates: start: 20130618, end: 20130624
  11. FENTANYL [Concomitant]
     Dosage: UNK
     Route: 042
     Dates: start: 20130618, end: 20130624
  12. KONAKION [Concomitant]
     Dosage: UNK
     Dates: start: 20130621, end: 201306
  13. PASPERTIN [Concomitant]
     Dosage: UNK
     Dates: start: 20130621, end: 201306
  14. PANTOZOL [Concomitant]
     Dosage: UNK
     Dates: start: 20130618
  15. ACETAMINOPHEN [Concomitant]
     Dosage: UNK
     Dates: start: 20130618, end: 201306

REACTIONS (2)
  - Hypersensitivity vasculitis [Recovered/Resolved]
  - Blood creatine phosphokinase increased [Recovered/Resolved]
